FAERS Safety Report 6371256-3 (Version None)
Quarter: 2009Q3

REPORT INFORMATION
  Report Type: 
  Country: None (occurrence: None)
  Receive Date: 20090923
  Receipt Date: 20070706
  Transmission Date: 20100115
  Serious: Yes (Hospitalization)
  Sender: FDA-Public Use
  Company Number: US-ASTRAZENECA-2007UW05543

PATIENT
  Age: 13537 Day
  Sex: Female
  Weight: 79.4 kg

DRUGS (30)
  1. SEROQUEL [Suspect]
     Indication: DEPRESSION
     Dosage: 100 - 200 MG DAILY
     Route: 048
     Dates: start: 20001027, end: 20001030
  2. SEROQUEL [Suspect]
     Indication: ANXIETY
     Dosage: 100 - 200 MG DAILY
     Route: 048
     Dates: start: 20001027, end: 20001030
  3. SEROQUEL [Suspect]
     Indication: PARANOIA
     Dosage: 100 - 200 MG DAILY
     Route: 048
     Dates: start: 20001027, end: 20001030
  4. SEROQUEL [Suspect]
     Indication: NIGHTMARE
     Dosage: 100 - 200 MG DAILY
     Route: 048
     Dates: start: 20001027, end: 20001030
  5. SEROQUEL [Suspect]
     Route: 048
     Dates: start: 20011201, end: 20060201
  6. SEROQUEL [Suspect]
     Route: 048
     Dates: start: 20011201, end: 20060201
  7. SEROQUEL [Suspect]
     Route: 048
     Dates: start: 20011201, end: 20060201
  8. SEROQUEL [Suspect]
     Route: 048
     Dates: start: 20011201, end: 20060201
  9. SEROQUEL [Suspect]
     Dosage: 100 - 600 MG DAILY
     Route: 048
     Dates: start: 20020130
  10. SEROQUEL [Suspect]
     Dosage: 100 - 600 MG DAILY
     Route: 048
     Dates: start: 20020130
  11. SEROQUEL [Suspect]
     Dosage: 100 - 600 MG DAILY
     Route: 048
     Dates: start: 20020130
  12. SEROQUEL [Suspect]
     Dosage: 100 - 600 MG DAILY
     Route: 048
     Dates: start: 20020130
  13. ZYPREXA [Concomitant]
     Dates: start: 20001106, end: 20040101
  14. RISPERDAL [Concomitant]
     Indication: ANXIETY
     Dates: start: 20010821, end: 20020101
  15. RISPERDAL [Concomitant]
     Indication: SLEEP DISORDER
     Dates: start: 20010821, end: 20020101
  16. RISPERDAL [Concomitant]
     Indication: PARANOIA
     Dates: start: 20010821, end: 20020101
  17. RISPERDAL [Concomitant]
     Route: 048
     Dates: start: 20010731, end: 20020630
  18. RISPERDAL [Concomitant]
     Route: 048
     Dates: start: 20010731, end: 20020630
  19. RISPERDAL [Concomitant]
     Route: 048
     Dates: start: 20010731, end: 20020630
  20. NEURONTIN [Concomitant]
     Dosage: 30 - 2000 MG DAILY
     Route: 048
  21. LEXAPRO [Concomitant]
     Dosage: 10 - 20 MG DAILY
  22. DIAZEPAM [Concomitant]
  23. TRAZODONE [Concomitant]
     Dosage: 100 - 150 MG DAILY
  24. ZOLOFT [Concomitant]
     Dosage: 50 - 150 MG DAILY
     Route: 048
  25. WELLBUTRIN SR [Concomitant]
     Dosage: 100 - 150 MG DAILY
     Route: 048
  26. TEMAZEPAM [Concomitant]
     Indication: INSOMNIA
     Dosage: 15 - 30 MG DAILY
  27. TEMAZEPAM [Concomitant]
     Route: 048
  28. GEODON [Concomitant]
  29. EFFEXOR [Concomitant]
     Dosage: 20 - 300 MG DAILY
     Route: 048
  30. HYDROXYZINE [Concomitant]
     Dosage: 25 - 75 MG DAILY
     Route: 048
     Dates: start: 20001020, end: 20020630

REACTIONS (2)
  - DIABETES MELLITUS [None]
  - DIABETIC KETOACIDOSIS [None]
